FAERS Safety Report 15093191 (Version 2)
Quarter: 2019Q2

REPORT INFORMATION
  Report Type: Spontaneous
  Country: CA (occurrence: CA)
  Receive Date: 20180629
  Receipt Date: 20190606
  Transmission Date: 20190711
  Serious: Yes (Hospitalization, Other)
  Sender: FDA-Public Use
  Company Number: CA-DSJP-DSU-2018-114765

PATIENT

DRUGS (3)
  1. OLMESARTAN HCT AG [Suspect]
     Active Substance: HYDROCHLOROTHIAZIDE\OLMESARTAN MEDOXOMIL
     Dosage: 0.5 DF (20/12.5 MG), QD
     Route: 048
     Dates: start: 2015, end: 2015
  2. OLMESARTAN HCT AG [Suspect]
     Active Substance: HYDROCHLOROTHIAZIDE\OLMESARTAN MEDOXOMIL
     Dosage: 1 DF (20/12.5 MG), QD
     Route: 048
     Dates: start: 2015
  3. OLMESARTAN HCT AG [Suspect]
     Active Substance: HYDROCHLOROTHIAZIDE\OLMESARTAN MEDOXOMIL
     Indication: HYPERTENSION
     Dosage: 1 DF (20/12.5 MG), QD
     Route: 048

REACTIONS (7)
  - Fall [Unknown]
  - Product administration error [Recovered/Resolved]
  - Colitis microscopic [Unknown]
  - Coeliac disease [Unknown]
  - Hypotension [Unknown]
  - Extra dose administered [Recovered/Resolved]
  - Syncope [Unknown]

NARRATIVE: CASE EVENT DATE: 201412
